FAERS Safety Report 23087526 (Version 1)
Quarter: 2023Q4

REPORT INFORMATION
  Report Type: Spontaneous
  Country: TW (occurrence: TW)
  Receive Date: 20231020
  Receipt Date: 20231020
  Transmission Date: 20240110
  Serious: Yes (Death)
  Sender: FDA-Public Use
  Company Number: TW-SA-SAC20210223000203

PATIENT
  Age: 56 Year
  Sex: Male

DRUGS (6)
  1. ZOLPIDEM TARTRATE [Suspect]
     Active Substance: ZOLPIDEM TARTRATE
     Dosage: MERGENCY DEPARTMENT, AND CONCOMITANT USE OF CITALOPRAM OR SULPHE RICK NF RENTRAL NERVAIIS SVSTEM INT
  2. CITALOPRAM [Suspect]
     Active Substance: CITALOPRAM HYDROBROMIDE
     Indication: Insomnia
  3. CITALOPRAM [Suspect]
     Active Substance: CITALOPRAM HYDROBROMIDE
     Indication: Depression
  4. CLONAZEPAM [Suspect]
     Active Substance: CLONAZEPAM
     Indication: Depression
  5. CLONAZEPAM [Suspect]
     Active Substance: CLONAZEPAM
     Indication: Insomnia
  6. DIAZEPAM [Suspect]
     Active Substance: DIAZEPAM

REACTIONS (1)
  - Toxicity to various agents [Fatal]
